FAERS Safety Report 10228678 (Version 2)
Quarter: 2014Q2

REPORT INFORMATION
  Report Type: Spontaneous
  Country: BR (occurrence: BR)
  Receive Date: 20140610
  Receipt Date: 20140610
  Transmission Date: 20141212
  Serious: Yes (Congenital Anomaly)
  Sender: FDA-Public Use
  Company Number: BR-PFIZER INC-2013245375

PATIENT
  Age: 5 Month
  Sex: Male
  Weight: 3.3 kg

DRUGS (3)
  1. DEPO-PROVERA [Suspect]
     Indication: CONTRACEPTION
     Dosage: 150 MG, UNK
     Route: 064
     Dates: start: 201302, end: 201305
  2. TORSILAX [Concomitant]
     Indication: PAIN
     Dosage: UNK
     Route: 050
  3. ACETAMINOPHEN [Concomitant]
     Indication: MYALGIA
     Route: 064

REACTIONS (3)
  - Maternal exposure during pregnancy [Recovered/Resolved]
  - Exposure via father [Recovered/Resolved]
  - Congenital intestinal malformation [Recovered/Resolved]
